FAERS Safety Report 6537332-7 (Version None)
Quarter: 2010Q1

REPORT INFORMATION
  Report Type: 
  Country: None (occurrence: None)
  Receive Date: 20100114
  Receipt Date: 20100112
  Transmission Date: 20100710
  Serious: Yes (Hospitalization, Disabling, Other)
  Sender: FDA-Public Use
  Company Number: DE-BRISTOL-MYERS SQUIBB COMPANY-14714406

PATIENT
  Age: 75 Year
  Sex: Male
  Weight: 81 kg

DRUGS (15)
  1. CETUXIMAB [Suspect]
     Indication: NON-SMALL CELL LUNG CANCER
     Dosage: RECENT INF:15JUL2009;2MG/ML DELAYED ON 16JUL09
     Route: 042
     Dates: start: 20090422, end: 20090715
  2. CARBOPLATIN [Suspect]
     Indication: NON-SMALL CELL LUNG CANCER
     Dosage: RECENT INF:15JUL2009 DELAYED ON 16JUL09
     Route: 042
     Dates: start: 20090422, end: 20090715
  3. GEMCITABINE [Suspect]
     Indication: NON-SMALL CELL LUNG CANCER
     Dosage: RECENT INF:15JUL2009; DOSE DELAYE ON 16JUL09
     Route: 042
     Dates: start: 20090422, end: 20090715
  4. PANTOPRAZOLE [Concomitant]
  5. METOHEXAL [Concomitant]
  6. SIMVASTATIN [Concomitant]
  7. ZYLORIC [Concomitant]
  8. SYMBICORT [Concomitant]
     Dosage: 1 DF= 160/4.5; 1 PUFF TWICE/D
  9. SPIRIVA [Concomitant]
  10. BERODUAL [Concomitant]
  11. DECORTIN [Concomitant]
     Dosage: 27JUL09-09AUG09(40MG)
     Dates: start: 20060720, end: 20090726
  12. LACTULOSE [Concomitant]
  13. AMOXICILLIN AND CLAVULANATE POTASSIUM [Concomitant]
     Dates: start: 20090724
  14. KALINOR [Concomitant]
     Dosage: 1 DF= 1 TABS
  15. ACETYLCYSTEINE [Concomitant]

REACTIONS (1)
  - ALVEOLITIS [None]
